FAERS Safety Report 4452153-7 (Version None)
Quarter: 2004Q3

REPORT INFORMATION
  Report Type: 
  Country: None (occurrence: None)
  Receive Date: 20040916
  Receipt Date: 20040916
  Transmission Date: 20050211
  Serious: No
  Sender: FDA-Public Use
  Company Number: None

PATIENT
  Sex: Female

DRUGS (1)
  1. TETROFOSMIN TC-99M 0.23 MG TETROFOSMIN [Suspect]
     Indication: SCAN
     Dosage: 1 ONE TIME IV
     Route: 042
     Dates: start: 20040913, end: 20040913

REACTIONS (1)
  - SCAN ABNORMAL [None]
